FAERS Safety Report 5172728-X (Version None)
Quarter: 2006Q4

REPORT INFORMATION
  Report Type: 
  Country: None (occurrence: None)
  Receive Date: 20061205
  Receipt Date: 20061124
  Transmission Date: 20070319
  Serious: Yes (Hospitalization)
  Sender: FDA-Public Use
  Company Number: TAP2006Q01924

PATIENT
  Age: 85 Year
  Sex: Male

DRUGS (4)
  1. LUPRON DEPOT-3 [Suspect]
     Indication: PROSTATE CANCER
     Dosage: 22.5 MG, 1 IN 3 M, INTRAMUSCULAR
     Route: 030
     Dates: start: 20030629
  2. ZOCOR [Concomitant]
  3. ALLOPURINOL [Concomitant]
  4. DYAZIDE [Concomitant]

REACTIONS (3)
  - CLOSTRIDIAL INFECTION [None]
  - SEPSIS [None]
  - URINARY RETENTION [None]
